FAERS Safety Report 7543884-0 (Version None)
Quarter: 2011Q2

REPORT INFORMATION
  Report Type: 
  Country: None (occurrence: None)
  Receive Date: 20110613
  Receipt Date: 20110603
  Transmission Date: 20111010
  Serious: Yes (Hospitalization, Other)
  Sender: FDA-Public Use
  Company Number: JP-ROCHE-776993

PATIENT
  Sex: Female
  Weight: 52 kg

DRUGS (11)
  1. HERCEPTIN [Suspect]
     Indication: METASTATIC GASTRIC CANCER
     Route: 042
     Dates: start: 20110330, end: 20110330
  2. DECADRON [Concomitant]
     Route: 041
     Dates: start: 20110330, end: 20110330
  3. REBAMIPIDE [Concomitant]
     Dosage: PERORAL AGENT
     Route: 048
  4. XELODA [Suspect]
     Indication: GASTRIC CANCER
     Route: 048
     Dates: start: 20110330, end: 20110411
  5. GASMOTIN [Concomitant]
     Route: 048
  6. PROTECADIN [Concomitant]
     Route: 048
  7. CELECOXIB [Concomitant]
     Route: 048
  8. PYDOXAL [Concomitant]
     Route: 048
  9. EMEND [Concomitant]
     Route: 048
  10. CISPLATIN [Suspect]
     Indication: GASTRIC CANCER
     Route: 041
     Dates: start: 20110330, end: 20110330
  11. ALOXI [Concomitant]
     Route: 041
     Dates: start: 20110330, end: 20110330

REACTIONS (6)
  - FEBRILE NEUTROPENIA [None]
  - DIARRHOEA [None]
  - DECREASED APPETITE [None]
  - INFECTION [None]
  - HAEMOGLOBIN DECREASED [None]
  - PLATELET COUNT DECREASED [None]
